FAERS Safety Report 8942026 (Version 5)
Quarter: 2013Q1

REPORT INFORMATION
  Report Type: Report from Study
  Country: TH (occurrence: TH)
  Receive Date: 20121203
  Receipt Date: 20130306
  Transmission Date: 20140127
  Serious: Yes (Hospitalization)
  Sender: FDA-Public Use
  Company Number: TH-PFIZER INC-2012223502

PATIENT
  Age: 50 Year
  Sex: Female
  Weight: 34.7 kg

DRUGS (12)
  1. TOFACITINIB CITRATE [Suspect]
     Dosage: 10 MG, 2X/DAY
     Route: 048
     Dates: start: 20120224, end: 20120910
  2. METHOTREXATE [Concomitant]
     Indication: RHEUMATOID ARTHRITIS
     Dosage: 10 MG, WEEKLY
     Route: 048
     Dates: start: 20090303, end: 20120911
  3. DICLOFENAC [Concomitant]
     Indication: RHEUMATOID ARTHRITIS
     Dosage: 50 MG, 2X/DAY
     Route: 048
     Dates: start: 20091027, end: 20120911
  4. PREDNISOLONE [Concomitant]
     Indication: RHEUMATOID ARTHRITIS
     Dosage: 5 MG, 1X/DAY
     Route: 048
     Dates: start: 20081014, end: 20120911
  5. FOLIC ACID [Concomitant]
     Indication: RHEUMATOID ARTHRITIS
     Dosage: 5 MG, 1X/DAY
     Route: 048
     Dates: start: 20041012
  6. ACETAMINOPHEN [Concomitant]
     Indication: RHEUMATOID ARTHRITIS
     Dosage: 500 MG, AS NEEDED
     Route: 048
     Dates: start: 20080730
  7. CALCIUM CARBONATE [Concomitant]
     Indication: MINERAL SUPPLEMENTATION
     Dosage: 1500 MG, 1X/DAY
     Route: 048
     Dates: start: 20050830
  8. MULTIVIT [Concomitant]
     Indication: VITAMIN SUPPLEMENTATION
     Dosage: 1 TAB, BID
     Route: 048
     Dates: start: 20061024
  9. OMEPRAZOLE [Concomitant]
     Indication: PROPHYLAXIS AGAINST GASTROINTESTINAL ULCER
     Dosage: 20 MG, 1X/DAY
     Route: 048
     Dates: start: 20050628
  10. MELIANE ED [Concomitant]
     Indication: CONTRACEPTION
     Dosage: 1 TAB, ONCE DAILY
     Route: 048
     Dates: start: 200910
  11. AMLODIPINE BESILATE [Concomitant]
     Indication: HYPERTENSION
     Dosage: 10 MG, 1X/DAY
     Route: 048
     Dates: start: 20080527
  12. TEARS NATURALE [Concomitant]
     Indication: CATARACT
     Dosage: 1 GTT, AS NEEDED
     Route: 047
     Dates: start: 20120905

REACTIONS (4)
  - Bronchiectasis [Recovered/Resolved]
  - Superinfection [Recovered/Resolved]
  - Cardiac failure [Recovered/Resolved]
  - Pulmonary hypertension [Recovered/Resolved]
